FAERS Safety Report 11512443 (Version 1)
Quarter: 2015Q3

REPORT INFORMATION
  Report Type: Report from Study
  Country: FR (occurrence: FR)
  Receive Date: 20150916
  Receipt Date: 20150916
  Transmission Date: 20151125
  Serious: Yes (Other)
  Sender: FDA-Public Use
  Company Number: PHHY2015FR092072

PATIENT
  Age: 57 Year
  Sex: Female

DRUGS (3)
  1. AFINITOR [Suspect]
     Active Substance: EVEROLIMUS
     Indication: BREAST CANCER METASTATIC
     Dosage: 10 MG, QD
     Route: 065
     Dates: start: 201505
  2. EXEMESTANE. [Suspect]
     Active Substance: EXEMESTANE
     Indication: BREAST CANCER METASTATIC
     Dosage: 25 MG
     Route: 048
     Dates: start: 20150529
  3. AFINITOR [Suspect]
     Active Substance: EVEROLIMUS
     Dosage: 5 MG
     Route: 048
     Dates: start: 20150529, end: 20150723

REACTIONS (3)
  - Haemorrhoids [Recovered/Resolved]
  - Mucosal inflammation [Recovering/Resolving]
  - Hordeolum [Recovered/Resolved]

NARRATIVE: CASE EVENT DATE: 20150530
